FAERS Safety Report 21234773 (Version 1)
Quarter: 2022Q3

REPORT INFORMATION
  Report Type: Report from Study
  Country: GB (occurrence: GB)
  Receive Date: 20220820
  Receipt Date: 20220820
  Transmission Date: 20221027
  Serious: Yes (Other)
  Sender: FDA-Public Use
  Company Number: GB-TAKEDA-GB201724062

PATIENT
  Age: 82 Year
  Sex: Male

DRUGS (11)
  1. ICATIBANT [Suspect]
     Active Substance: ICATIBANT ACETATE
     Indication: Product used for unknown indication
     Dosage: UNK
     Route: 065
     Dates: start: 20150209
  2. ICATIBANT [Suspect]
     Active Substance: ICATIBANT ACETATE
     Indication: Product used for unknown indication
     Dosage: UNK
     Route: 065
     Dates: start: 20150209
  3. ICATIBANT [Suspect]
     Active Substance: ICATIBANT ACETATE
     Dosage: UNK
     Route: 065
     Dates: start: 20161016
  4. ICATIBANT [Suspect]
     Active Substance: ICATIBANT ACETATE
     Dosage: UNK
     Route: 065
     Dates: start: 20161016
  5. BECLOMETHASONE DIPROPIONATE [Concomitant]
     Active Substance: BECLOMETHASONE DIPROPIONATE
     Indication: Rhinitis
     Dosage: 50 MICROGRAM, BID
     Route: 045
     Dates: start: 20120705
  6. LEVOTHYROXINE [Concomitant]
     Active Substance: LEVOTHYROXINE
     Indication: Hypothyroidism
     Dosage: 50 MILLIGRAM, QD
     Route: 048
     Dates: start: 20130101, end: 20160731
  7. FISH OIL\OMEGA-3 FATTY ACIDS [Concomitant]
     Active Substance: FISH OIL\OMEGA-3 FATTY ACIDS
     Indication: General physical health deterioration
     Dosage: UNK, SINGLE
     Route: 048
     Dates: start: 20100101
  8. VITAMINS [Concomitant]
     Active Substance: VITAMINS
     Indication: General physical health deterioration
     Dosage: UNK, SINGLE
     Route: 048
     Dates: start: 20100101
  9. GINKGO [Concomitant]
     Active Substance: GINKGO
     Indication: Product used for unknown indication
  10. GLUCOSAMINE [Concomitant]
     Active Substance: GLUCOSAMINE
     Indication: Product used for unknown indication
  11. STANOZOLOL [Concomitant]
     Active Substance: STANOZOLOL
     Indication: Prophylaxis

REACTIONS (1)
  - Basal cell carcinoma [Recovered/Resolved]

NARRATIVE: CASE EVENT DATE: 20170816
